FAERS Safety Report 18425071 (Version 1)
Quarter: 2020Q4

REPORT INFORMATION
  Report Type: Spontaneous
  Country: GB (occurrence: GB)
  Receive Date: 20201026
  Receipt Date: 20201026
  Transmission Date: 20210114
  Serious: Yes (Other)
  Sender: FDA-Public Use
  Company Number: GB-DEXPHARM-20200983

PATIENT
  Age: 66 Year
  Sex: Female
  Weight: 71.66 kg

DRUGS (4)
  1. VENLAFAXINE HYDROCHLORIDE. [Suspect]
     Active Substance: VENLAFAXINE HYDROCHLORIDE
     Indication: SLEEP DISORDER
     Route: 048
     Dates: start: 20200917, end: 20200918
  2. DIAZEPAM. [Concomitant]
     Active Substance: DIAZEPAM
  3. VITAMIN D [Concomitant]
     Active Substance: VITAMIN D NOS
  4. CITALOPRAM [Concomitant]
     Active Substance: CITALOPRAM HYDROBROMIDE

REACTIONS (5)
  - Sleep disorder [Recovered/Resolved]
  - Restless legs syndrome [Recovered/Resolved]
  - Headache [Not Recovered/Not Resolved]
  - Nausea [Not Recovered/Not Resolved]
  - Blood pressure increased [Recovered/Resolved with Sequelae]

NARRATIVE: CASE EVENT DATE: 20200917
